FAERS Safety Report 19488305 (Version 5)
Quarter: 2021Q4

REPORT INFORMATION
  Report Type: Spontaneous
  Country: JP (occurrence: JP)
  Receive Date: 20210702
  Receipt Date: 20211029
  Transmission Date: 20220304
  Serious: Yes (Death, Life-Threatening, Hospitalization, Other)
  Sender: FDA-Public Use
  Company Number: JP-TAKEDA-2021TUS040701

PATIENT
  Age: 49 Year
  Sex: Female
  Weight: 65 kg

DRUGS (14)
  1. LIALDA [Suspect]
     Active Substance: MESALAMINE
     Indication: Colitis ulcerative
     Dosage: 1200 MILLIGRAM, Q6HR
     Route: 048
     Dates: start: 20190701, end: 20190719
  2. HEPARIN SODIUM [Suspect]
     Active Substance: HEPARIN SODIUM
     Indication: Anticoagulant therapy
     Dosage: 12 KILO-INTERNATIONAL UNIT, QD
     Route: 042
     Dates: start: 20190714
  3. HEPARIN SODIUM [Suspect]
     Active Substance: HEPARIN SODIUM
     Dosage: 12 KILO-INTERNATIONAL UNIT, QD
     Route: 042
  4. HEPARIN SODIUM [Suspect]
     Active Substance: HEPARIN SODIUM
     Dosage: 12 KILO-INTERNATIONAL UNIT, QD
     Route: 042
     Dates: end: 20190804
  5. PREDNISOLONE [Suspect]
     Active Substance: PREDNISOLONE
     Indication: Colitis ulcerative
     Dosage: 80 MILLIGRAM, QD
     Route: 048
     Dates: start: 20190629, end: 20190629
  6. PREDNISOLONE [Suspect]
     Active Substance: PREDNISOLONE
     Dosage: 15 MILLIGRAM, Q12H
     Route: 048
     Dates: start: 20190710, end: 20190714
  7. PREDNISOLONE [Suspect]
     Active Substance: PREDNISOLONE
     Dosage: 80 MILLIGRAM, QD
     Route: 041
     Dates: start: 20190628, end: 20190630
  8. PREDNISOLONE [Suspect]
     Active Substance: PREDNISOLONE
     Dosage: 60 MILLIGRAM, QD
     Route: 041
     Dates: start: 20190701, end: 20190704
  9. PREDNISOLONE [Suspect]
     Active Substance: PREDNISOLONE
     Dosage: 40 MILLIGRAM, QD
     Route: 041
     Dates: start: 20190705, end: 20190709
  10. BUDESONIDE [Concomitant]
     Active Substance: BUDESONIDE
     Indication: Colitis ulcerative
     Dosage: UNK, QD
     Route: 054
     Dates: start: 20190709, end: 20190713
  11. PRASUGREL HYDROCHLORIDE [Concomitant]
     Active Substance: PRASUGREL HYDROCHLORIDE
     Indication: Anticoagulant therapy
  12. ASPIRIN [Concomitant]
     Active Substance: ASPIRIN
     Indication: Anticoagulant therapy
     Dosage: 100 GRAM, QD
     Route: 048
     Dates: start: 20190714, end: 20190804
  13. NEXIUM [Concomitant]
     Active Substance: ESOMEPRAZOLE MAGNESIUM
     Indication: Prophylaxis against gastrointestinal ulcer
     Dosage: 20 MILLIGRAM, QD
     Route: 048
     Dates: start: 20190628, end: 20190714
  14. SULFAMETHOXAZOLE\TRIMETHOPRIM [Concomitant]
     Active Substance: SULFAMETHOXAZOLE\TRIMETHOPRIM
     Indication: Prophylaxis
     Dosage: 1 GRAM, QD
     Route: 048
     Dates: start: 20190628, end: 20190804

REACTIONS (6)
  - Acute myocardial infarction [Fatal]
  - Aortic thrombosis [Fatal]
  - Ventricular fibrillation [Fatal]
  - Melaena [Recovering/Resolving]
  - Shock haemorrhagic [Recovering/Resolving]
  - Abdominal pain [Unknown]

NARRATIVE: CASE EVENT DATE: 20190714
